FAERS Safety Report 5573456-9 (Version None)
Quarter: 2007Q4

REPORT INFORMATION
  Report Type: 
  Country: None (occurrence: None)
  Receive Date: 20071220
  Receipt Date: 20071220
  Transmission Date: 20080405
  Serious: Yes (Hospitalization)
  Sender: FDA-Public Use
  Company Number: None

PATIENT
  Sex: Male
  Weight: 79.3 kg

DRUGS (3)
  1. CYTARABINE [Suspect]
     Dosage: 27300 MG
     Dates: end: 20071111
  2. ETOPOSIDE [Suspect]
     Dosage: 3030 MG
     Dates: end: 20071108
  3. RITUXIMAB (MOAB C2B8 ANTI CD20, CHIMERIC) [Suspect]
     Dosage: 1460 MG
     Dates: end: 20071121

REACTIONS (3)
  - CLOSTRIDIAL INFECTION [None]
  - FEBRILE NEUTROPENIA [None]
  - HYPOTENSION [None]
